FAERS Safety Report 4849682-0 (Version None)
Quarter: 2005Q4

REPORT INFORMATION
  Report Type: 
  Country: None (occurrence: None)
  Receive Date: 20051115
  Receipt Date: 20050726
  Transmission Date: 20060501
  Serious: No
  Sender: FDA-Public Use
  Company Number: S05-USA-02729-01

PATIENT
  Age: 86 Year
  Sex: Female
  Weight: 77.1115 kg

DRUGS (20)
  1. NAMENDA [Suspect]
     Indication: DEMENTIA
     Dosage: 5 MG QD PO
     Route: 048
     Dates: start: 20050501, end: 20050501
  2. NAMENDA [Suspect]
     Indication: DEMENTIA
     Dosage: 5 MG BID PO
     Route: 048
     Dates: start: 20050501, end: 20050501
  3. NAMENDA [Suspect]
     Indication: DEMENTIA
     Dosage: 15 MG QD PO
     Route: 048
     Dates: start: 20050501, end: 20050524
  4. PRILOSEC [Concomitant]
  5. NORVASC [Concomitant]
  6. COZAAR [Concomitant]
  7. TOPROL-XL [Concomitant]
  8. HYDROCHLOROTHIAZIDE [Concomitant]
  9. POTASSIUM [Concomitant]
  10. COUMADIN [Concomitant]
  11. ZOCOR [Concomitant]
  12. CELEXA [Concomitant]
  13. ASPIRIN [Concomitant]
  14. MAGNESIUM [Concomitant]
  15. CALTRATE (CALICIUM CARBONATE) [Concomitant]
  16. MULTI-VITAMIN [Concomitant]
  17. GLUCOSAMINE [Concomitant]
  18. ASCORBIC ACID [Concomitant]
  19. FOLATE [Concomitant]
  20. VITAMIN E [Concomitant]

REACTIONS (3)
  - DIZZINESS [None]
  - FATIGUE [None]
  - HYPERHIDROSIS [None]
